FAERS Safety Report 23087571 (Version 2)
Quarter: 2023Q4

REPORT INFORMATION
  Report Type: Report from Study
  Country: US (occurrence: US)
  Receive Date: 20231020
  Receipt Date: 20231025
  Transmission Date: 20240109
  Serious: Yes (Hospitalization)
  Sender: FDA-Public Use
  Company Number: US-ABBVIE-5456236

PATIENT
  Sex: Male

DRUGS (1)
  1. HUMIRA [Suspect]
     Active Substance: ADALIMUMAB
     Indication: Hidradenitis
     Dosage: HUMIRA - UNKNOWN DEVICE
     Route: 058
     Dates: end: 2023

REACTIONS (2)
  - Glycosylated haemoglobin increased [Not Recovered/Not Resolved]
  - Diabetes mellitus [Unknown]
